FAERS Safety Report 24315608 (Version 1)
Quarter: 2024Q3

REPORT INFORMATION
  Report Type: Spontaneous
  Country: US (occurrence: US)
  Receive Date: 20240913
  Receipt Date: 20240913
  Transmission Date: 20241017
  Serious: No
  Sender: ALVOGEN
  Company Number: US-ALVOGEN-2023092146

PATIENT
  Sex: Female

DRUGS (10)
  1. DISULFIRAM [Suspect]
     Active Substance: DISULFIRAM
     Indication: Lyme disease
     Dosage: FROM 2 MONTHS
     Route: 048
  2. RIFAMPIN [Concomitant]
     Active Substance: RIFAMPIN
     Indication: Lyme disease
     Route: 048
  3. AZITHROMYCIN [Concomitant]
     Active Substance: AZITHROMYCIN
     Indication: Lyme disease
     Dosage: HALF A TABLET BY MOUTH IN EVENING WITH MEAL
     Route: 048
  4. PANTOPRAZOLE SODIUM [Concomitant]
     Active Substance: PANTOPRAZOLE SODIUM
     Indication: Nausea
  5. IVERMECTIN [Concomitant]
     Active Substance: IVERMECTIN
     Indication: Lyme disease
  6. ATORVASTATIN [Concomitant]
     Active Substance: ATORVASTATIN
     Indication: Hypercholesterolaemia
  7. METOPROLOL SUCCINATE [Concomitant]
     Active Substance: METOPROLOL SUCCINATE
     Indication: Product used for unknown indication
  8. LOSARTAN POTASSIUM [Concomitant]
     Active Substance: LOSARTAN POTASSIUM
     Indication: Product used for unknown indication
     Dosage: 100 MG/25 MG
  9. Isosorbide mono-ER [Concomitant]
     Indication: Product used for unknown indication
  10. LEVOXYL [Concomitant]
     Active Substance: LEVOTHYROXINE SODIUM
     Indication: Hypothyroidism
     Dosage: 100 MCG

REACTIONS (2)
  - Nausea [Unknown]
  - Off label use [Unknown]
